FAERS Safety Report 17561720 (Version 1)
Quarter: 2020Q1

REPORT INFORMATION
  Report Type: Spontaneous
  Country: None (occurrence: US)
  Receive Date: 20200319
  Receipt Date: 20200319
  Transmission Date: 20200409
  Serious: Yes (Hospitalization)
  Sender: FDA-Public Use
  Company Number: US-THE PROACTIV LLC-2081784

PATIENT
  Age: 79 Year
  Sex: Female

DRUGS (6)
  1. PROACTIV DEEP CLEANSING WASH [Suspect]
     Active Substance: SALICYLIC ACID
     Route: 061
     Dates: start: 2020, end: 2020
  2. PROACTIV MD DAILY OIL CONTROL SPF 30 [Concomitant]
     Active Substance: AVOBENZONE\OCTISALATE\OCTOCRYLENE
     Route: 061
     Dates: start: 2020, end: 2020
  3. PROACTIV MD DEEP FACIAL CLEANSER- COSMETIC [Concomitant]
     Route: 061
     Dates: start: 2020, end: 2020
  4. PROACTIV SOLUTION BLACKHEAD DISSOLVING [Suspect]
     Active Substance: SALICYLIC ACID
     Indication: ACNE
     Route: 061
     Dates: start: 2020, end: 2020
  5. PROACTIV MD ADAPALENE ACNE TREATMENT [Concomitant]
     Active Substance: ADAPALENE
     Route: 061
     Dates: start: 2020, end: 2020
  6. PROACTIV  GREEN TEA MOISTURIZER  COSMETIC [Concomitant]
     Route: 061
     Dates: start: 2020, end: 2020

REACTIONS (7)
  - Sensitive skin [Unknown]
  - Condition aggravated [Unknown]
  - Acne [Unknown]
  - Pain of skin [Unknown]
  - Hiatus hernia [Unknown]
  - Erythema [Unknown]
  - Systemic lupus erythematosus [Unknown]

NARRATIVE: CASE EVENT DATE: 2020
